FAERS Safety Report 5631693-9 (Version None)
Quarter: 2008Q1

REPORT INFORMATION
  Report Type: 
  Country: None (occurrence: None)
  Receive Date: 20080220
  Receipt Date: 20080208
  Transmission Date: 20080703
  Serious: Yes (Other)
  Sender: FDA-Public Use
  Company Number: GB-JNJFOC-20080106465

PATIENT
  Age: 17 Year
  Sex: Female
  Weight: 62 kg

DRUGS (1)
  1. CONCERTA [Suspect]
     Indication: ATTENTION DEFICIT/HYPERACTIVITY DISORDER
     Route: 048

REACTIONS (3)
  - DIZZINESS [None]
  - HEADACHE [None]
  - ORTHOSTATIC HYPOTENSION [None]
